FAERS Safety Report 6527497-5 (Version None)
Quarter: 2010Q1

REPORT INFORMATION
  Report Type: 
  Country: None (occurrence: None)
  Receive Date: 20100105
  Receipt Date: 20091221
  Transmission Date: 20100710
  Serious: No
  Sender: FDA-Public Use
  Company Number: US-B.I. PHARMACEUTICALS,INC./RIDGEFIELD-2009-BP-14669BP

PATIENT
  Age: 72 Year
  Sex: Female

DRUGS (6)
  1. SPIRIVA [Suspect]
     Indication: CHRONIC OBSTRUCTIVE PULMONARY DISEASE
     Dosage: 18 MCG
     Route: 055
     Dates: start: 20090101
  2. OXYGEN [Concomitant]
     Indication: CHRONIC OBSTRUCTIVE PULMONARY DISEASE
  3. PAIN MED [Concomitant]
     Indication: OSTEOPOROSIS
  4. BLOOD THINNER [Concomitant]
     Indication: CARDIAC DISORDER
  5. WATER PILLS [Concomitant]
     Indication: CHRONIC OBSTRUCTIVE PULMONARY DISEASE
  6. BLOOD PRESSURE PILL [Concomitant]
     Indication: HYPERTENSION

REACTIONS (3)
  - DRY EYE [None]
  - DRY MOUTH [None]
  - DYSPNOEA [None]
